FAERS Safety Report 15404769 (Version 1)
Quarter: 2018Q3

REPORT INFORMATION
  Report Type: Spontaneous
  Country: US (occurrence: US)
  Receive Date: 20180919
  Receipt Date: 20180919
  Transmission Date: 20181010
  Serious: No
  Sender: FDA-Public Use
  Company Number: US-SA-2018SA258635

PATIENT
  Age: 59 Year
  Sex: Female

DRUGS (1)
  1. ALLEGRA ALLERGY [Suspect]
     Active Substance: FEXOFENADINE HYDROCHLORIDE
     Indication: ANGIOEDEMA
     Dosage: 180 MG, BID
     Route: 065
     Dates: start: 201806

REACTIONS (1)
  - Dysgeusia [Unknown]
